FAERS Safety Report 4466034-6 (Version None)
Quarter: 2004Q3

REPORT INFORMATION
  Report Type: 
  Country: None (occurrence: None)
  Receive Date: 20040930
  Receipt Date: 20040922
  Transmission Date: 20050211
  Serious: Yes (Life-Threatening, Disabling)
  Sender: FDA-Public Use
  Company Number: 2004AP04916

PATIENT
  Age: 76 Year
  Sex: Male

DRUGS (1)
  1. NAROPIN [Suspect]

REACTIONS (3)
  - SHOCK [None]
  - SICK SINUS SYNDROME [None]
  - SUPRAVENTRICULAR TACHYCARDIA [None]
